FAERS Safety Report 8581692-2 (Version None)
Quarter: 2012Q3

REPORT INFORMATION
  Report Type: 
  Country: None (occurrence: None)
  Receive Date: 20120801
  Receipt Date: 20120801
  Transmission Date: 20120928
  Serious: No
  Sender: FDA-Public Use
  Company Number: None

PATIENT
  Age: 75 Year
  Sex: Female
  Weight: 84.369 kg

DRUGS (2)
  1. SULFAMETHOXAZOLE AND TRIMETHOPRIM [Suspect]
     Indication: LOCALISED INFECTION
     Dosage: ONE TAB 3 TIMES A DAY PO
     Route: 048
     Dates: start: 20120510, end: 20120510
  2. SULFAMETHOXAZOLE AND TRIMETHOPRIM [Suspect]
     Indication: STAPHYLOCOCCAL INFECTION
     Dosage: ONE TAB 3 TIMES A DAY PO
     Route: 048
     Dates: start: 20120510, end: 20120510

REACTIONS (2)
  - URTICARIA [None]
  - RASH [None]
